FAERS Safety Report 21672383 (Version 2)
Quarter: 2022Q4

REPORT INFORMATION
  Report Type: Report from Study
  Country: CO (occurrence: CO)
  Receive Date: 20221202
  Receipt Date: 20221216
  Transmission Date: 20230112
  Serious: Yes (Hospitalization, Other)
  Sender: FDA-Public Use
  Company Number: CO-TAKEDA-2022TUS092611

PATIENT
  Age: 20 Year
  Sex: Male
  Weight: 80 kg

DRUGS (3)
  1. ADVATE [Suspect]
     Active Substance: ANTIHEMOPHILIC FACTOR, HUMAN RECOMBINANT
     Indication: Haemophilic arthropathy
     Dosage: 2500 INTERNATIONAL UNIT
     Route: 042
     Dates: start: 20201129
  2. ADVATE [Suspect]
     Active Substance: ANTIHEMOPHILIC FACTOR, HUMAN RECOMBINANT
     Indication: Haemophilic arthropathy
     Dosage: 2500 INTERNATIONAL UNIT
     Route: 042
     Dates: start: 20201129
  3. ADVATE [Suspect]
     Active Substance: ANTIHEMOPHILIC FACTOR, HUMAN RECOMBINANT
     Indication: Haemophilic arthropathy
     Dosage: 2500 INTERNATIONAL UNIT
     Route: 042
     Dates: start: 20201129

REACTIONS (3)
  - Pain [Unknown]
  - Arthritis [Recovered/Resolved]
  - Off label use [Unknown]

NARRATIVE: CASE EVENT DATE: 20220201
